FAERS Safety Report 8502139-8 (Version None)
Quarter: 2012Q3

REPORT INFORMATION
  Report Type: 
  Country: None (occurrence: None)
  Receive Date: 20120711
  Receipt Date: 20120704
  Transmission Date: 20120928
  Serious: Yes (Hospitalization)
  Sender: FDA-Public Use
  Company Number: SK-JNJFOC-20120512686

PATIENT
  Sex: Male
  Weight: 105 kg

DRUGS (2)
  1. USTEKINUMAB [Suspect]
     Indication: PSORIASIS
     Route: 058
     Dates: start: 20090901
  2. HYPERTENSION MEDICATION NOS [Concomitant]

REACTIONS (2)
  - HYPERTENSION [None]
  - HAEMORRHAGIC STROKE [None]
